FAERS Safety Report 9267088 (Version 2)
Quarter: 2013Q2

REPORT INFORMATION
  Report Type: Spontaneous
  Country: US (occurrence: US)
  Receive Date: 20130502
  Receipt Date: 20130604
  Transmission Date: 20140414
  Serious: No
  Sender: FDA-Public Use
  Company Number: US-PFIZER INC-2013135100

PATIENT
  Sex: Female

DRUGS (5)
  1. ADVIL [Suspect]
     Indication: PAIN
     Dosage: UNK, AS NEEDED
     Route: 048
  2. DEPAKOTE [Concomitant]
     Indication: BIPOLAR DISORDER
     Dosage: UNK
  3. XANAX [Concomitant]
     Indication: BIPOLAR DISORDER
     Dosage: UNK
  4. NELFINAVIR MESILATE [Concomitant]
     Indication: HIV INFECTION
     Dosage: UNK
  5. NEVIRAPINE [Concomitant]
     Indication: HIV INFECTION
     Dosage: UNK

REACTIONS (4)
  - Poor quality drug administered [Unknown]
  - Abdominal discomfort [Recovered/Resolved]
  - Product taste abnormal [Unknown]
  - Capsule physical issue [Unknown]
